FAERS Safety Report 9200327 (Version 1)
Quarter: 2013Q1

REPORT INFORMATION
  Report Type: Spontaneous
  Country: US (occurrence: US)
  Receive Date: 20130329
  Receipt Date: 20130329
  Transmission Date: 20140127
  Serious: No
  Sender: FDA-Public Use
  Company Number: US-GLAXOSMITHKLINE-A0975393A

PATIENT
  Age: 49 Year
  Sex: Female
  Weight: 89.89 kg

DRUGS (16)
  1. BENLYSTA [Suspect]
     Indication: SYSTEMIC LUPUS ERYTHEMATOSUS
     Route: 042
     Dates: start: 20120418
  2. CELLCEPT [Concomitant]
     Dosage: 500MG PER DAY
  3. PLAQUENIL [Concomitant]
     Dosage: 200MG PER DAY
  4. PREDNISONE [Concomitant]
     Dosage: 5MG PER DAY
  5. NIFEDIPINE [Concomitant]
     Dosage: 30MG PER DAY
  6. LEVOTHYROXINE [Concomitant]
     Dosage: 200MCG PER DAY
  7. PROTONIX [Concomitant]
     Dosage: 40MG PER DAY
  8. ASA [Concomitant]
     Dosage: 81MG PER DAY
  9. VITAMIN B 12 [Concomitant]
     Dosage: 1000MG TWO TIMES PER WEEK
     Route: 030
  10. VITAMIN D [Concomitant]
  11. CYMBALTA [Concomitant]
     Dosage: 60MG PER DAY
  12. GLUCOSAMINE CHONDROITIN [Concomitant]
     Dosage: 155MG PER DAY
  13. CALCIUM [Concomitant]
     Dosage: 500MG PER DAY
  14. TYLENOL # 3 [Concomitant]
  15. CLARITIN [Concomitant]
  16. VICODIN [Concomitant]

REACTIONS (8)
  - Paraesthesia oral [Not Recovered/Not Resolved]
  - Dysgeusia [Not Recovered/Not Resolved]
  - Chills [Recovered/Resolved]
  - Hyperhidrosis [Recovered/Resolved]
  - Pharyngeal oedema [Not Recovered/Not Resolved]
  - Swelling face [Recovered/Resolved]
  - Swollen tongue [Recovered/Resolved]
  - Bronchitis [Unknown]
